FAERS Safety Report 7544483-7 (Version None)
Quarter: 2011Q2

REPORT INFORMATION
  Report Type: 
  Country: None (occurrence: None)
  Receive Date: 20110613
  Receipt Date: 20110406
  Transmission Date: 20111010
  Serious: Yes (Other)
  Sender: FDA-Public Use
  Company Number: PHHY2011BR29959

PATIENT
  Sex: Male

DRUGS (1)
  1. AFINITOR [Suspect]
     Indication: RENAL CANCER
     Dosage: 10 MG, QD
     Route: 048
     Dates: start: 20110112, end: 20110212

REACTIONS (3)
  - THERAPEUTIC RESPONSE DECREASED [None]
  - METASTASES TO BONE [None]
  - RESPIRATORY FATIGUE [None]
